FAERS Safety Report 4296882-7 (Version None)
Quarter: 2004Q1

REPORT INFORMATION
  Report Type: 
  Country: None (occurrence: None)
  Receive Date: 20040126
  Receipt Date: 20030902
  Transmission Date: 20041129
  Serious: No
  Sender: FDA-Public Use
  Company Number: USA030435147

PATIENT
  Age: 12 Year
  Sex: Male
  Weight: 48 kg

DRUGS (4)
  1. STRATTERA [Suspect]
     Indication: DYSGRAPHIA
     Dosage: 60 MG/DAY
     Dates: start: 20030410
  2. ADVAIR DISKUS 100/50 [Concomitant]
  3. RITALIN [Concomitant]
  4. XOPENEX [Concomitant]

REACTIONS (2)
  - DISTURBANCE IN ATTENTION [None]
  - DRUG INEFFECTIVE [None]
